FAERS Safety Report 7108788-6 (Version None)
Quarter: 2010Q4

REPORT INFORMATION
  Report Type: 
  Country: None (occurrence: None)
  Receive Date: 20101117
  Receipt Date: 20101109
  Transmission Date: 20110411
  Serious: Yes (Death)
  Sender: FDA-Public Use
  Company Number: EE-ACTELION-A-CH2010-41460

PATIENT
  Sex: Female

DRUGS (2)
  1. TRACLEER [Suspect]
     Indication: PULMONARY ARTERIAL HYPERTENSION
     Dosage: 125 MG, BID
     Route: 048
     Dates: end: 20100914
  2. TRACLEER [Suspect]
     Dosage: UNK
     Route: 048
     Dates: start: 20061124

REACTIONS (2)
  - PULMONARY ARTERIAL HYPERTENSION [None]
  - SUDDEN DEATH [None]
